FAERS Safety Report 9942348 (Version 3)
Quarter: 2014Q1

REPORT INFORMATION
  Report Type: Spontaneous
  Country: JP (occurrence: JP)
  Receive Date: 20140303
  Receipt Date: 20140326
  Transmission Date: 20141002
  Serious: Yes (Other)
  Sender: FDA-Public Use
  Company Number: JP-ASTRAZENECA-2014SE14744

PATIENT
  Age: 67 Year
  Sex: Male

DRUGS (5)
  1. SEROQUEL [Suspect]
     Indication: SCHIZOPHRENIA
     Route: 048
     Dates: end: 20140221
  2. SEROQUEL [Suspect]
     Indication: SCHIZOPHRENIA
     Route: 048
     Dates: start: 20140222
  3. LONASEN [Suspect]
     Route: 048
  4. VALPROATE SODIUM [Suspect]
     Route: 048
  5. TAMSULOSIN [Concomitant]
     Route: 048

REACTIONS (1)
  - Pancytopenia [Recovering/Resolving]
